FAERS Safety Report 5466691-1 (Version None)
Quarter: 2007Q3

REPORT INFORMATION
  Report Type: 
  Country: None (occurrence: None)
  Receive Date: 20070925
  Receipt Date: 20070920
  Transmission Date: 20080115
  Serious: Yes (Death, Other)
  Sender: FDA-Public Use
  Company Number: US-ASTRAZENECA-2006UW11915

PATIENT
  Sex: Male
  Weight: 59.1 kg

DRUGS (1)
  1. SEROQUEL [Suspect]
     Route: 048

REACTIONS (3)
  - DIABETES MELLITUS [None]
  - DIABETIC COMA [None]
  - DRUG TOXICITY [None]
